FAERS Safety Report 18271606 (Version 24)
Quarter: 2023Q1

REPORT INFORMATION
  Report Type: Report from Study
  Country: CN (occurrence: None)
  Receive Date: 20200916
  Receipt Date: 20230307
  Transmission Date: 20230418
  Serious: Yes (Hospitalization, Disabling)
  Sender: FDA-Public Use
  Company Number: CN-ROCHE-2673283

PATIENT
  Age: 35 Year
  Sex: Female
  Weight: 55 kg

DRUGS (74)
  1. PLACEBO [Suspect]
     Active Substance: UNSPECIFIED INGREDIENT
     Indication: Non-small cell lung cancer stage IV
     Dosage: MOST RECENT DOSE PRIOR TO SERIOUS ADVERSE EVENT ONSET: 26/AUG/2020
     Route: 042
     Dates: start: 20200826
  2. CARBOPLATIN [Suspect]
     Active Substance: CARBOPLATIN
     Indication: Non-small cell lung cancer stage IV
     Dosage: MOST RECENT DOSE PRIOR TO SERIOUS ADVERSE EVENT ONSET: 26/AUG/2020 (784 MG)
     Route: 042
     Dates: start: 20200826
  3. BEVACIZUMAB [Suspect]
     Active Substance: BEVACIZUMAB
     Indication: Non-small cell lung cancer stage IV
     Dosage: MOST RECENT DOSE PRIOR TO SERIOUS ADVERSE EVENT ONSET: 26/AUG/2020 (825 MG)
     Route: 042
     Dates: start: 20200826
  4. PEMETREXED [Suspect]
     Active Substance: PEMETREXED
     Indication: Non-small cell lung cancer stage IV
     Dosage: MOST RECENT DOSE PRIOR TO SERIOUS ADVERSE EVENT ONSET: 26/AUG/2020 (755 MG)
     Route: 042
     Dates: start: 20200826
  5. FOLIC ACID [Concomitant]
     Active Substance: FOLIC ACID
     Dates: start: 20200819
  6. DEXAMETHASONE ACETATE [Concomitant]
     Active Substance: DEXAMETHASONE ACETATE
     Route: 048
     Dates: start: 20200825, end: 20200825
  7. DEXAMETHASONE ACETATE [Concomitant]
     Active Substance: DEXAMETHASONE ACETATE
     Route: 048
     Dates: start: 20200826, end: 20200827
  8. DEXAMETHASONE ACETATE [Concomitant]
     Active Substance: DEXAMETHASONE ACETATE
     Route: 048
     Dates: start: 20200828, end: 20200828
  9. DEXAMETHASONE ACETATE [Concomitant]
     Active Substance: DEXAMETHASONE ACETATE
     Route: 048
     Dates: start: 20200826, end: 20200826
  10. DEXAMETHASONE ACETATE [Concomitant]
     Active Substance: DEXAMETHASONE ACETATE
     Route: 048
     Dates: start: 20201028, end: 20201029
  11. DEXAMETHASONE ACETATE [Concomitant]
     Active Substance: DEXAMETHASONE ACETATE
     Dosage: PREVENT ALLERGIES
     Route: 048
     Dates: start: 20201118, end: 20201118
  12. DEXAMETHASONE ACETATE [Concomitant]
     Active Substance: DEXAMETHASONE ACETATE
     Dosage: PREVENT ALLERGIES
     Route: 048
     Dates: start: 20201119, end: 20201120
  13. DEXAMETHASONE ACETATE [Concomitant]
     Active Substance: DEXAMETHASONE ACETATE
     Dosage: PREVENT ALLERGIES
     Route: 048
     Dates: start: 20201209, end: 20201209
  14. DEXAMETHASONE ACETATE [Concomitant]
     Active Substance: DEXAMETHASONE ACETATE
     Dosage: PREVENT ALLERGIES
     Route: 048
     Dates: start: 20201230, end: 20201231
  15. DEXAMETHASONE ACETATE [Concomitant]
     Active Substance: DEXAMETHASONE ACETATE
     Dosage: PREVENT ALLERGIES
     Route: 048
     Dates: start: 20210101, end: 20210101
  16. DEXAMETHASONE ACETATE [Concomitant]
     Active Substance: DEXAMETHASONE ACETATE
     Route: 048
     Dates: start: 20201219, end: 20201219
  17. DEXAMETHASONE ACETATE [Concomitant]
     Active Substance: DEXAMETHASONE ACETATE
     Route: 048
     Dates: start: 20201211, end: 20201211
  18. DEXAMETHASONE ACETATE [Concomitant]
     Active Substance: DEXAMETHASONE ACETATE
     Route: 048
     Dates: start: 20201229, end: 20201229
  19. DEXAMETHASONE ACETATE [Concomitant]
     Active Substance: DEXAMETHASONE ACETATE
     Dosage: MEDICATION INDICATION PREVENT ALLERGY
     Route: 048
     Dates: start: 20210109, end: 20210109
  20. DEXAMETHASONE ACETATE [Concomitant]
     Active Substance: DEXAMETHASONE ACETATE
     Dates: start: 20210120, end: 20210121
  21. OMEPRAZOLE MAGNESIUM [Concomitant]
     Active Substance: OMEPRAZOLE MAGNESIUM
     Route: 048
     Dates: start: 20200825, end: 20200825
  22. OMEPRAZOLE MAGNESIUM [Concomitant]
     Active Substance: OMEPRAZOLE MAGNESIUM
     Route: 048
     Dates: start: 20200827, end: 20200910
  23. HERBALS\DIAMMONIUM GLYCYRRHIZINATE [Concomitant]
     Active Substance: HERBALS\DIAMMONIUM GLYCYRRHIZINATE
     Dates: start: 20200827, end: 20200916
  24. HERBALS\DIAMMONIUM GLYCYRRHIZINATE [Concomitant]
     Active Substance: HERBALS\DIAMMONIUM GLYCYRRHIZINATE
     Route: 048
     Dates: start: 20200902, end: 20200904
  25. HERBALS\DIAMMONIUM GLYCYRRHIZINATE [Concomitant]
     Active Substance: HERBALS\DIAMMONIUM GLYCYRRHIZINATE
     Dosage: PROTECT LIVER
     Route: 048
     Dates: start: 20200827, end: 20200901
  26. HERBALS\DIAMMONIUM GLYCYRRHIZINATE [Concomitant]
     Active Substance: HERBALS\DIAMMONIUM GLYCYRRHIZINATE
     Route: 048
     Dates: start: 20200906, end: 20200916
  27. HERBALS\DIAMMONIUM GLYCYRRHIZINATE [Concomitant]
     Active Substance: HERBALS\DIAMMONIUM GLYCYRRHIZINATE
     Dosage: PROTECT LIVER
     Dates: start: 20201028, end: 20201103
  28. HERBALS\DIAMMONIUM GLYCYRRHIZINATE [Concomitant]
     Active Substance: HERBALS\DIAMMONIUM GLYCYRRHIZINATE
     Dates: start: 20201120, end: 20201203
  29. HERBALS\DIAMMONIUM GLYCYRRHIZINATE [Concomitant]
     Active Substance: HERBALS\DIAMMONIUM GLYCYRRHIZINATE
     Route: 042
     Dates: start: 20201028, end: 20201110
  30. GLUTATHIONE [Concomitant]
     Active Substance: GLUTATHIONE
     Route: 042
     Dates: start: 20200902, end: 20200907
  31. GLUTATHIONE [Concomitant]
     Active Substance: GLUTATHIONE
     Route: 048
     Dates: start: 20200902, end: 20200904
  32. GLUTATHIONE [Concomitant]
     Active Substance: GLUTATHIONE
     Dates: start: 20200827, end: 20200907
  33. GLUTATHIONE [Concomitant]
     Active Substance: GLUTATHIONE
     Dates: start: 20200905, end: 20200907
  34. GLUTATHIONE [Concomitant]
     Active Substance: GLUTATHIONE
     Dosage: PROTECT LIVER
     Dates: start: 20201028, end: 20201108
  35. GLUTATHIONE [Concomitant]
     Active Substance: GLUTATHIONE
     Dosage: PROTECT LIVER
     Dates: start: 20201120, end: 20201201
  36. LEUCOGEN TABLETS [Concomitant]
     Dosage: PREVENT LEUKOPENIA AND THROMBOCYTOPENIA
     Dates: start: 20200827, end: 20200911
  37. LEUCOGEN TABLETS [Concomitant]
     Dosage: PREVENT GRANULOCYTOSIS.
     Dates: start: 20201028, end: 20201112
  38. LEUCOGEN TABLETS [Concomitant]
     Dosage: PREVENT GRANULOCYTOSIS
     Dates: start: 20201120, end: 20201205
  39. LEUCOGEN TABLETS [Concomitant]
     Dates: start: 20201209
  40. URSODIOL [Concomitant]
     Active Substance: URSODIOL
     Dosage: PROTECT LIVER
     Dates: start: 20201014
  41. BICYCLOL [Concomitant]
     Active Substance: BICYCLOL
     Dosage: PROTECT LIVER
     Dates: start: 20201014
  42. LANSOPRAZOLE [Concomitant]
     Active Substance: LANSOPRAZOLE
     Route: 048
     Dates: start: 20201026, end: 20201026
  43. LANSOPRAZOLE [Concomitant]
     Active Substance: LANSOPRAZOLE
     Dosage: PROTECT THE STOMACH
     Dates: start: 20201028, end: 20201103
  44. LANSOPRAZOLE [Concomitant]
     Active Substance: LANSOPRAZOLE
     Dosage: PROTECT THE STOMACH
     Dates: start: 20201120, end: 20201126
  45. LANSOPRAZOLE [Concomitant]
     Active Substance: LANSOPRAZOLE
     Dosage: PROTECT THE STOMACH
     Dates: start: 20201210, end: 20201210
  46. LANSOPRAZOLE [Concomitant]
     Active Substance: LANSOPRAZOLE
     Dosage: PROTECT THE STOMACH
     Dates: start: 20201210, end: 20201217
  47. LANSOPRAZOLE [Concomitant]
     Active Substance: LANSOPRAZOLE
     Dosage: PROTECT THE STOMACH
     Dates: start: 20210101, end: 20210107
  48. LANSOPRAZOLE [Concomitant]
     Active Substance: LANSOPRAZOLE
     Dates: start: 20200826, end: 20200826
  49. LANSOPRAZOLE [Concomitant]
     Active Substance: LANSOPRAZOLE
     Dates: start: 20201027, end: 20201027
  50. LANSOPRAZOLE [Concomitant]
     Active Substance: LANSOPRAZOLE
     Dates: start: 20201230, end: 20201230
  51. LANSOPRAZOLE [Concomitant]
     Active Substance: LANSOPRAZOLE
     Dosage: MEDICATION INDICATION TO PROTECT THE STOMACH
     Dates: start: 20210120, end: 20210120
  52. LANSOPRAZOLE [Concomitant]
     Active Substance: LANSOPRAZOLE
     Dates: start: 20201119, end: 20201119
  53. LANSOPRAZOLE [Concomitant]
     Active Substance: LANSOPRAZOLE
     Dates: start: 20201209, end: 20201209
  54. LANSOPRAZOLE [Concomitant]
     Active Substance: LANSOPRAZOLE
     Dates: start: 20210121, end: 20210127
  55. ONDANSETRON HYDROCHLORIDE [Concomitant]
     Active Substance: ONDANSETRON HYDROCHLORIDE
     Dosage: PREVENT NAUSEA AND VOMITING
     Dates: start: 20201028, end: 20201102
  56. ONDANSETRON HYDROCHLORIDE [Concomitant]
     Active Substance: ONDANSETRON HYDROCHLORIDE
     Dosage: PREVENT NAUSEA AND VOMITING
     Dates: start: 20201120, end: 20201120
  57. ONDANSETRON HYDROCHLORIDE [Concomitant]
     Active Substance: ONDANSETRON HYDROCHLORIDE
     Dosage: PREVENT NAUSEA AND VOMITING
     Dates: start: 20201210, end: 20201214
  58. ONDANSETRON HYDROCHLORIDE [Concomitant]
     Active Substance: ONDANSETRON HYDROCHLORIDE
     Dosage: PREVENT NAUSEA AND VOMITING
     Dates: start: 20210101, end: 20210106
  59. ONDANSETRON HYDROCHLORIDE [Concomitant]
     Active Substance: ONDANSETRON HYDROCHLORIDE
     Dates: start: 20210121, end: 20210126
  60. TROPISETRON HYDROCHLORIDE [Concomitant]
     Active Substance: TROPISETRON HYDROCHLORIDE
     Dosage: PREVENT NAUSEA AND VOMITING
     Dates: start: 20201210, end: 20201210
  61. TROPISETRON HYDROCHLORIDE [Concomitant]
     Active Substance: TROPISETRON HYDROCHLORIDE
     Dates: start: 20201230, end: 20201230
  62. TROPISETRON HYDROCHLORIDE [Concomitant]
     Active Substance: TROPISETRON HYDROCHLORIDE
     Dosage: MEDICATION INDICATION PREVENTION OF NAUSEA AND VOMITING
     Dates: start: 20210120, end: 20210120
  63. TROPISETRON HYDROCHLORIDE [Concomitant]
     Active Substance: TROPISETRON HYDROCHLORIDE
     Dosage: PREVENT NAUSEA AND VOMITING
     Dates: start: 20201027, end: 20201027
  64. TROPISETRON HYDROCHLORIDE [Concomitant]
     Active Substance: TROPISETRON HYDROCHLORIDE
     Dosage: PREVENT NAUSEA AND VOMITING
     Dates: start: 20201119, end: 20201119
  65. TROPISETRON HYDROCHLORIDE [Concomitant]
     Active Substance: TROPISETRON HYDROCHLORIDE
     Dosage: PREVENT NAUSEA AND VOMITING
     Dates: start: 20201209, end: 20201209
  66. TROPISETRON HYDROCHLORIDE [Concomitant]
     Active Substance: TROPISETRON HYDROCHLORIDE
     Dates: start: 20200826, end: 20200826
  67. BETAMETHASONE SODIUM PHOSPHATE [Concomitant]
     Active Substance: BETAMETHASONE SODIUM PHOSPHATE
     Dosage: PREVENT ALLERGIES
     Route: 042
     Dates: start: 20201209, end: 20201210
  68. BETAMETHASONE SODIUM PHOSPHATE [Concomitant]
     Active Substance: BETAMETHASONE SODIUM PHOSPHATE
     Route: 042
     Dates: start: 20201209, end: 20201209
  69. BETAMETHASONE SODIUM PHOSPHATE [Concomitant]
     Active Substance: BETAMETHASONE SODIUM PHOSPHATE
     Dosage: MEDICATION INDICATION PREVENT ALLERGY
     Route: 050
     Dates: start: 20210120, end: 20210120
  70. BETAMETHASONE SODIUM PHOSPHATE [Concomitant]
     Active Substance: BETAMETHASONE SODIUM PHOSPHATE
     Dosage: PREVENT ALLERGIES
     Route: 050
     Dates: start: 20201230, end: 20201230
  71. BETAMETHASONE SODIUM PHOSPHATE [Concomitant]
     Active Substance: BETAMETHASONE SODIUM PHOSPHATE
     Dosage: PREVENT ALLERGIES
     Route: 050
     Dates: start: 20201027, end: 20201027
  72. BETAMETHASONE SODIUM PHOSPHATE [Concomitant]
     Active Substance: BETAMETHASONE SODIUM PHOSPHATE
     Dosage: PREVENT ALLERGIES
     Route: 050
     Dates: start: 20201119, end: 20201119
  73. PALONOSETRON HYDROCHLORIDE [Concomitant]
     Active Substance: PALONOSETRON HYDROCHLORIDE
     Dates: start: 20200826, end: 20200826
  74. DEXAMETHASONE SODIUM PHOSPHATE [Concomitant]
     Active Substance: DEXAMETHASONE SODIUM PHOSPHATE
     Route: 042
     Dates: start: 20201119, end: 20201119

REACTIONS (1)
  - Hepatic function abnormal [Recovered/Resolved]

NARRATIVE: CASE EVENT DATE: 20200901
